FAERS Safety Report 8290331-X (Version None)
Quarter: 2012Q2

REPORT INFORMATION
  Report Type: 
  Country: None (occurrence: None)
  Receive Date: 20120413
  Receipt Date: 20120413
  Transmission Date: 20120825
  Serious: Yes (Hospitalization)
  Sender: FDA-Public Use
  Company Number: None

PATIENT
  Sex: Female
  Weight: 49.8957 kg

DRUGS (1)
  1. VESICARE [Suspect]
     Indication: HYPERTONIC BLADDER
     Dosage: 5 MG ONCE A DAY BY MOUTH
     Route: 048
     Dates: start: 20111208, end: 20120320

REACTIONS (4)
  - ABDOMINAL PAIN [None]
  - DRY MOUTH [None]
  - CONSTIPATION [None]
  - GASTROINTESTINAL OBSTRUCTION [None]
